FAERS Safety Report 8815552 (Version 3)
Quarter: 2014Q3

REPORT INFORMATION
  Report Type: Spontaneous
  Country: US (occurrence: US)
  Receive Date: 20120928
  Receipt Date: 20140708
  Transmission Date: 20150326
  Serious: Yes (Hospitalization)
  Sender: FDA-Public Use
  Company Number: US-009507513-2011SP005535

PATIENT
  Sex: Female
  Weight: 110.68 kg

DRUGS (3)
  1. NUVARING [Suspect]
     Active Substance: ETHINYL ESTRADIOL\ETONOGESTREL
     Dosage: UNK
     Route: 067
     Dates: start: 200712, end: 200807
  2. ACETAMINOPHEN (+) HYDROCODONE BITARTRATE [Concomitant]
     Active Substance: ACETAMINOPHEN\HYDROCODONE
     Indication: ANALGESIC THERAPY
     Dosage: UNK UNK, PRN
  3. NUVARING [Suspect]
     Active Substance: ETHINYL ESTRADIOL\ETONOGESTREL
     Indication: CONTRACEPTION
     Dosage: UNK
     Route: 067
     Dates: start: 20060508

REACTIONS (12)
  - Emotional disorder [Unknown]
  - Vaginal infection [Unknown]
  - Oedema peripheral [Unknown]
  - Head injury [Unknown]
  - Mental disorder [Unknown]
  - Musculoskeletal chest pain [Unknown]
  - Embolism venous [Unknown]
  - Fatigue [Unknown]
  - Angina pectoris [Unknown]
  - Deep vein thrombosis [Unknown]
  - Sinus disorder [Unknown]
  - Weight increased [Unknown]

NARRATIVE: CASE EVENT DATE: 200712
